FAERS Safety Report 6375924-9 (Version None)
Quarter: 2009Q3

REPORT INFORMATION
  Report Type: 
  Country: None (occurrence: None)
  Receive Date: 20090924
  Receipt Date: 20090909
  Transmission Date: 20100115
  Serious: Yes (Other)
  Sender: FDA-Public Use
  Company Number: US-GENENTECH-290617

PATIENT
  Age: 62 Year
  Sex: Male

DRUGS (3)
  1. RANIBIZUMAB [Suspect]
     Indication: CHOROIDAL NEOVASCULARISATION
     Dosage: UNK
     Route: 031
     Dates: start: 20061101, end: 20071201
  2. RANIBIZUMAB [Suspect]
  3. BEVACIZUMAB [Suspect]
     Indication: DRUG USE FOR UNKNOWN INDICATION

REACTIONS (3)
  - CATARACT [None]
  - CHOROIDAL NEOVASCULARISATION [None]
  - MACULOPATHY [None]
